FAERS Safety Report 25737973 (Version 1)
Quarter: 2025Q3

REPORT INFORMATION
  Report Type: Report from Study
  Country: CA (occurrence: CA)
  Receive Date: 20250829
  Receipt Date: 20250829
  Transmission Date: 20251021
  Serious: Yes (Other)
  Sender: JOHNSON AND JOHNSON
  Company Number: CA-JNJFOC-20250314207

PATIENT
  Age: 66 Year
  Sex: Female

DRUGS (6)
  1. REMICADE [Suspect]
     Active Substance: INFLIXIMAB
     Indication: Scleritis
     Route: 041
     Dates: start: 20130219
  2. REMICADE [Suspect]
     Active Substance: INFLIXIMAB
     Route: 041
  3. REMICADE [Suspect]
     Active Substance: INFLIXIMAB
     Route: 041
     Dates: start: 20200416
  4. REMICADE [Suspect]
     Active Substance: INFLIXIMAB
     Route: 041
     Dates: start: 20130219
  5. REMICADE [Suspect]
     Active Substance: INFLIXIMAB
     Route: 041
  6. REMICADE [Suspect]
     Active Substance: INFLIXIMAB
     Dosage: EXPIRY DATE:09-2027
     Route: 041
     Dates: start: 20130219

REACTIONS (8)
  - Syncope [Not Recovered/Not Resolved]
  - Polyarthritis [Not Recovered/Not Resolved]
  - Eye laser surgery [Unknown]
  - Cataract [Unknown]
  - Neoplasm malignant [Unknown]
  - COVID-19 [Recovering/Resolving]
  - Blood iron abnormal [Not Recovered/Not Resolved]
  - Vomiting [Not Recovered/Not Resolved]

NARRATIVE: CASE EVENT DATE: 20250228
